FAERS Safety Report 7421358-5 (Version None)
Quarter: 2011Q2

REPORT INFORMATION
  Report Type: 
  Country: None (occurrence: None)
  Receive Date: 20110418
  Receipt Date: 20110331
  Transmission Date: 20111010
  Serious: No
  Sender: FDA-Public Use
  Company Number: US-B.I. PHARMACEUTICALS,INC./RIDGEFIELD-2011-BP-06680BP

PATIENT
  Age: 83 Year
  Sex: Female

DRUGS (16)
  1. SYNTHROID [Concomitant]
  2. RIPANAROL [Concomitant]
  3. MULTIPLE VITAMINS [Concomitant]
  4. PRADAXA [Suspect]
     Indication: ATRIAL FIBRILLATION
     Dosage: 150 MG
     Route: 048
     Dates: start: 20110101
  5. DIOVAN [Concomitant]
  6. CITRICAL [Concomitant]
  7. IRON [Concomitant]
  8. NORTRIPTYLINE [Concomitant]
     Indication: DEPRESSION
  9. REFRESH EYE [Concomitant]
     Indication: EYE DISORDER
  10. EYE GEL [Concomitant]
     Indication: EYE DISORDER
  11. PRESERVISION VITAMIN [Concomitant]
     Indication: EYE DISORDER
  12. DIGOXIN [Concomitant]
  13. CARVEDILOL [Concomitant]
  14. FUROSEMIDE [Concomitant]
  15. SIMVASTATIN [Concomitant]
  16. ALIGN PROBIOTIC [Concomitant]

REACTIONS (3)
  - DIARRHOEA [None]
  - DYSPNOEA [None]
  - INSOMNIA [None]
